FAERS Safety Report 8058478-0 (Version None)
Quarter: 2012Q1

REPORT INFORMATION
  Report Type: 
  Country: None (occurrence: None)
  Receive Date: 20120120
  Receipt Date: 20120114
  Transmission Date: 20120608
  Serious: Yes (Hospitalization)
  Sender: FDA-Public Use
  Company Number: BR-PFIZER INC-2012012534

PATIENT
  Age: 70 Year
  Sex: Female
  Weight: 68 kg

DRUGS (4)
  1. LOSARTAN POTASSIUM [Concomitant]
     Indication: HYPERTENSION
     Dosage: 100 MG, 2X/DAY
     Dates: start: 20110101
  2. DIAZEPAM [Concomitant]
     Indication: SEDATIVE THERAPY
     Dosage: UNK
  3. METFORMIN [Concomitant]
     Indication: DIABETES MELLITUS
     Dosage: UNK
     Dates: start: 20110101
  4. LOPID [Suspect]
     Indication: BLOOD TRIGLYCERIDES INCREASED
     Dosage: 900 MG, 2X/DAY, IN THE MORNING AND IN THE EVENING
     Route: 048
     Dates: start: 20120109

REACTIONS (5)
  - MALAISE [None]
  - RETCHING [None]
  - TREMOR [None]
  - HEADACHE [None]
  - DIZZINESS [None]
